FAERS Safety Report 19608875 (Version 3)
Quarter: 2021Q3

REPORT INFORMATION
  Report Type: Spontaneous
  Country: US (occurrence: US)
  Receive Date: 20210726
  Receipt Date: 20210809
  Transmission Date: 20211014
  Serious: No
  Sender: FDA-Public Use
  Company Number: US-GLAXOSMITHKLINE-US2021AMR156918

PATIENT
  Age: 29 Year
  Sex: Female

DRUGS (4)
  1. BENLYSTA [Suspect]
     Active Substance: BELIMUMAB
     Indication: RHEUMATOID ARTHRITIS
  2. BENLYSTA [Suspect]
     Active Substance: BELIMUMAB
     Indication: ANTIPHOSPHOLIPID ANTIBODIES
  3. BENLYSTA [Suspect]
     Active Substance: BELIMUMAB
     Indication: OSTEOPOROSIS
     Dosage: 200 MG, Z, WEEKLY
  4. BENLYSTA [Suspect]
     Active Substance: BELIMUMAB
     Indication: SENILE OSTEOPOROSIS

REACTIONS (6)
  - Injection site urticaria [Unknown]
  - Injection site mass [Unknown]
  - Product dose omission issue [Unknown]
  - Injection site pruritus [Unknown]
  - Injection site erythema [Unknown]
  - Product use in unapproved indication [Unknown]

NARRATIVE: CASE EVENT DATE: 202107
